FAERS Safety Report 7923737-6 (Version None)
Quarter: 2011Q4

REPORT INFORMATION
  Report Type: 
  Country: None (occurrence: None)
  Receive Date: 20111117
  Receipt Date: 20110208
  Transmission Date: 20120403
  Serious: No
  Sender: FDA-Public Use
  Company Number: US-AMGEN-USASP2011007455

PATIENT
  Sex: Female

DRUGS (1)
  1. ENBREL [Suspect]
     Indication: RHEUMATOID ARTHRITIS
     Dosage: 50 MG, 2 TIMES/WK
     Dates: start: 20060801

REACTIONS (5)
  - HEADACHE [None]
  - RHEUMATOID ARTHRITIS [None]
  - VISION BLURRED [None]
  - RED BLOOD CELL SEDIMENTATION RATE INCREASED [None]
  - NAUSEA [None]
